FAERS Safety Report 6981511-1 (Version None)
Quarter: 2010Q3

REPORT INFORMATION
  Report Type: 
  Country: None (occurrence: None)
  Receive Date: 20100914
  Receipt Date: 20100902
  Transmission Date: 20110219
  Serious: Yes (Other)
  Sender: FDA-Public Use
  Company Number: PHHY2010US58568

PATIENT
  Sex: Male

DRUGS (1)
  1. EXJADE [Suspect]
     Indication: HEPATIC NEOPLASM MALIGNANT
     Dosage: 500 MG, TID
     Route: 048
     Dates: start: 20100226

REACTIONS (1)
  - MALAISE [None]
